FAERS Safety Report 10253041 (Version 1)
Quarter: 2014Q2

REPORT INFORMATION
  Report Type: Spontaneous
  Country: GB (occurrence: GB)
  Receive Date: 20140623
  Receipt Date: 20140623
  Transmission Date: 20141212
  Serious: Yes (Other)
  Sender: FDA-Public Use
  Company Number: GB-ELI_LILLY_AND_COMPANY-GB201406003689

PATIENT
  Age: 42 Year
  Sex: Female
  Weight: 73.02 kg

DRUGS (3)
  1. DULOXETINE HYDROCHLORIDE [Suspect]
     Indication: FIBROMYALGIA
     Dosage: 60 MG, UNKNOWN
     Route: 048
     Dates: start: 20121127
  2. DULOXETINE HYDROCHLORIDE [Suspect]
     Dosage: 30 MG, UNKNOWN (FOR 10 DAYS, STOPPED FOUR DAYS AGO - DATE UNSPECIFIED)
     Route: 048
     Dates: end: 201405
  3. CERAZETTE                          /00754001/ [Concomitant]
     Indication: PRODUCT USED FOR UNKNOWN INDICATION
     Dosage: 1 DF, UNKNOWN
     Route: 065

REACTIONS (9)
  - Emotional disorder [Not Recovered/Not Resolved]
  - Dizziness exertional [Not Recovered/Not Resolved]
  - Feeling abnormal [Not Recovered/Not Resolved]
  - Screaming [Not Recovered/Not Resolved]
  - Anger [Not Recovered/Not Resolved]
  - Nausea [Not Recovered/Not Resolved]
  - Paraesthesia oral [Not Recovered/Not Resolved]
  - Fatigue [Not Recovered/Not Resolved]
  - Withdrawal syndrome [Not Recovered/Not Resolved]
